FAERS Safety Report 21905737 (Version 1)
Quarter: 2023Q1

REPORT INFORMATION
  Report Type: Spontaneous
  Country: CN (occurrence: CN)
  Receive Date: 20230124
  Receipt Date: 20230124
  Transmission Date: 20230418
  Serious: Yes (Other)
  Sender: FDA-Public Use
  Company Number: CN-009507513-2301CHN008367

PATIENT
  Age: 95 Year
  Sex: Female
  Weight: 53 kg

DRUGS (2)
  1. CILASTATIN SODIUM\IMIPENEM [Suspect]
     Active Substance: CILASTATIN SODIUM\IMIPENEM
     Indication: Pneumonia
     Dosage: 0.5 G, Q12H
     Route: 041
     Dates: start: 20221229, end: 20230112
  2. SODIUM CHLORIDE [Concomitant]
     Active Substance: SODIUM CHLORIDE

REACTIONS (2)
  - Seizure [Recovering/Resolving]
  - Neurotoxicity [Unknown]

NARRATIVE: CASE EVENT DATE: 20230112
